FAERS Safety Report 13030546 (Version 1)
Quarter: 2016Q4

REPORT INFORMATION
  Report Type: Spontaneous
  Country: US (occurrence: US)
  Receive Date: 20161215
  Receipt Date: 20161215
  Transmission Date: 20170207
  Serious: No
  Sender: FDA-Public Use
  Company Number: None

PATIENT
  Age: 82 Year
  Sex: Female
  Weight: 68.1 kg

DRUGS (3)
  1. ESOMEPRA MAG CAP [Suspect]
     Active Substance: ESOMEPRAZOLE MAGNESIUM
     Indication: DRUG THERAPY
     Dosage: ?          QUANTITY:4 [JUL/5, U! I (UDFILJUUI;?
     Route: 048
     Dates: start: 20160425, end: 20160710
  2. VITAMIN D [Concomitant]
     Active Substance: CHOLECALCIFEROL
  3. ESOMEPRA MAG CAP [Suspect]
     Active Substance: ESOMEPRAZOLE MAGNESIUM
     Indication: DYSPEPSIA
     Dosage: ?          QUANTITY:4 [JUL/5, U! I (UDFILJUUI;?
     Route: 048
     Dates: start: 20160425, end: 20160710

REACTIONS (7)
  - Nausea [None]
  - Flatulence [None]
  - Dyspnoea [None]
  - Abdominal pain upper [None]
  - Dry mouth [None]
  - Rash [None]
  - Diarrhoea [None]

NARRATIVE: CASE EVENT DATE: 20160425
